FAERS Safety Report 5947539-5 (Version None)
Quarter: 2008Q4

REPORT INFORMATION
  Report Type: 
  Country: None (occurrence: None)
  Receive Date: 20081110
  Receipt Date: 20081101
  Transmission Date: 20090506
  Serious: Yes (Death, Hospitalization, Other)
  Sender: FDA-Public Use
  Company Number: PHHY2008JP25240

PATIENT
  Age: 60 Year
  Sex: Male

DRUGS (7)
  1. NEORAL [Suspect]
     Indication: RENAL TRANSPLANT
     Dosage: 80 MG/DAY IN TWO DOSES
     Route: 048
     Dates: start: 19920101, end: 20081016
  2. SANDIMMUNE [Suspect]
     Indication: RENAL TRANSPLANT
     Dosage: UNK
     Dates: start: 20081017
  3. SANDIMMUNE [Suspect]
     Indication: IMMUNOSUPPRESSION
  4. CELLCEPT [Concomitant]
     Dosage: 6 DF PER DAY
  5. ULGUT [Concomitant]
     Dosage: 4 DF PER DAY
  6. MEDROL [Concomitant]
     Dosage: 6 MG PER DAY
  7. ZYLORIC [Concomitant]
     Dosage: 200 MG PER DAY

REACTIONS (3)
  - GASTRIC ULCER [None]
  - HAEMATEMESIS [None]
  - MELAENA [None]
